FAERS Safety Report 4528245-0 (Version None)
Quarter: 2004Q4

REPORT INFORMATION
  Report Type: 
  Country: None (occurrence: None)
  Receive Date: 20041130
  Receipt Date: 20040729
  Transmission Date: 20050328
  Serious: No
  Sender: FDA-Public Use
  Company Number: WAES 0405USA01769

PATIENT
  Age: 67 Year
  Sex: Female
  Weight: 64.8644 kg

DRUGS (5)
  1. ZETIA [Suspect]
     Indication: BLOOD CHOLESTEROL INCREASED
     Dosage: 10 MG DAILY PO
     Route: 048
     Dates: start: 20040401, end: 20040517
  2. ALTACE [Concomitant]
  3. LIPITOR [Concomitant]
  4. ASPIRIN [Concomitant]
  5. FISH OIL [Concomitant]

REACTIONS (2)
  - DIARRHOEA [None]
  - EYE SWELLING [None]
